FAERS Safety Report 7874265-8 (Version None)
Quarter: 2011Q4

REPORT INFORMATION
  Report Type: 
  Country: None (occurrence: None)
  Receive Date: 20111030
  Receipt Date: 20110517
  Transmission Date: 20120403
  Serious: No
  Sender: FDA-Public Use
  Company Number: US-AMGEN-USASP2011025583

PATIENT
  Age: 52 Year
  Sex: Female

DRUGS (3)
  1. B6 [Concomitant]
     Dosage: UNK
     Dates: start: 20110517
  2. TREXALL [Concomitant]
     Dosage: 1 MG, QWK
     Dates: start: 20110517
  3. ENBREL [Suspect]
     Indication: RHEUMATOID ARTHRITIS
     Dosage: 50 MG, QWK
     Dates: start: 20110114

REACTIONS (3)
  - ANTIBIOTIC THERAPY [None]
  - ORAL HERPES [None]
  - RHEUMATOID ARTHRITIS [None]
